FAERS Safety Report 23050635 (Version 1)
Quarter: 2023Q4

REPORT INFORMATION
  Report Type: Spontaneous
  Country: NL (occurrence: NL)
  Receive Date: 20231010
  Receipt Date: 20231010
  Transmission Date: 20240110
  Serious: Yes (Other)
  Sender: FDA-Public Use
  Company Number: NL-SUN PHARMACEUTICAL INDUSTRIES LTD-2023R1-411978

PATIENT
  Age: 22 Year
  Sex: Female

DRUGS (2)
  1. ALBUTEROL\IPRATROPIUM BROMIDE [Suspect]
     Active Substance: ALBUTEROL\IPRATROPIUM BROMIDE
     Indication: Asthma
     Dosage: 1/0.2 MG/ML
     Route: 065
  2. PREDNISONE [Suspect]
     Active Substance: PREDNISONE
     Indication: Asthma
     Dosage: 30 MILLIGRAM, QD
     Route: 065

REACTIONS (3)
  - Asthma [Unknown]
  - Exposure during pregnancy [Unknown]
  - Live birth [Unknown]
